FAERS Safety Report 4642377-8 (Version None)
Quarter: 2005Q2

REPORT INFORMATION
  Report Type: 
  Country: None (occurrence: None)
  Receive Date: 20050422
  Receipt Date: 20031225
  Transmission Date: 20051028
  Serious: Yes (Hospitalization)
  Sender: FDA-Public Use
  Company Number: JP-GLAXOSMITHKLINE-B0318577A

PATIENT
  Age: 62 Year
  Sex: Female

DRUGS (9)
  1. EPIVIR [Suspect]
     Indication: ACQUIRED IMMUNODEFICIENCY SYNDROME
     Dosage: 300MG PER DAY
     Route: 048
     Dates: start: 20031216, end: 20031226
  2. KALETRA [Suspect]
     Indication: ACQUIRED IMMUNODEFICIENCY SYNDROME
     Dosage: 3CAP PER DAY
     Route: 048
     Dates: start: 20031216, end: 20031221
  3. ZERIT [Concomitant]
     Indication: ACQUIRED IMMUNODEFICIENCY SYNDROME
     Route: 048
     Dates: start: 20031216, end: 20031226
  4. VIRACEPT [Concomitant]
     Indication: ACQUIRED IMMUNODEFICIENCY SYNDROME
     Route: 048
     Dates: start: 20031221, end: 20031226
  5. MEBRON [Concomitant]
     Indication: PNEUMOCYSTIS JIROVECI PNEUMONIA
     Dosage: 300MG PER DAY
     Route: 048
     Dates: start: 20031208
  6. RISPERDAL [Concomitant]
     Indication: PERSECUTORY DELUSION
     Route: 048
     Dates: start: 20031117
  7. LORAZEPAM [Concomitant]
     Indication: PERSECUTORY DELUSION
     Dosage: .5MG PER DAY
     Route: 048
     Dates: start: 20031205
  8. MAGLAX [Concomitant]
     Indication: CONSTIPATION
     Dosage: 750MG PER DAY
     Route: 048
     Dates: start: 20031115
  9. ULCERLMIN [Concomitant]
     Dosage: 3G PER DAY
     Route: 048
     Dates: start: 20031119

REACTIONS (4)
  - BLOOD PRESSURE DECREASED [None]
  - BRADYARRHYTHMIA [None]
  - HEART RATE DECREASED [None]
  - SICK SINUS SYNDROME [None]
